FAERS Safety Report 5898734-5 (Version None)
Quarter: 2008Q3

REPORT INFORMATION
  Report Type: 
  Country: None (occurrence: None)
  Receive Date: 20080925
  Receipt Date: 20080513
  Transmission Date: 20090109
  Serious: No
  Sender: FDA-Public Use
  Company Number: A0727694A

PATIENT
  Sex: Male

DRUGS (4)
  1. BUPROPION HYDROCHLORIDE [Suspect]
     Dosage: 300MG PER DAY
     Route: 048
     Dates: start: 20080301
  2. LAMICTAL [Suspect]
     Indication: BIPOLAR DISORDER
     Dosage: 200MG PER DAY
     Route: 048
     Dates: start: 20080301
  3. CLONAZEPAM [Suspect]
     Indication: INSOMNIA
     Dosage: .5MG VARIABLE DOSE
     Route: 048
     Dates: start: 20080301
  4. FLUOXETINE [Suspect]
     Dosage: 20MG PER DAY
     Route: 048
     Dates: start: 20080509

REACTIONS (1)
  - RASH [None]
